FAERS Safety Report 9506604 (Version 1)
Quarter: 2013Q3

REPORT INFORMATION
  Report Type: Spontaneous
  Country: DE (occurrence: None)
  Receive Date: 20130904
  Receipt Date: 20130904
  Transmission Date: 20140515
  Serious: Yes (Other)
  Sender: FDA-Public Use
  Company Number: FK201303893

PATIENT
  Age: 63 Year
  Sex: Male

DRUGS (3)
  1. FLUOROURACIL (MANUFACTURER UNKNOWN) (FLUOROURACIL) (FLUOROURACIL) [Suspect]
     Indication: COLORECTAL CANCER
  2. ONCOFOLIC [Suspect]
     Indication: COLORECTAL CANCER
  3. MITOMYCIN [Suspect]
     Indication: COLORECTAL CANCER

REACTIONS (9)
  - Thrombocytopenia [None]
  - Leukopenia [None]
  - Granulocytopenia [None]
  - Nausea [None]
  - Toxicity to various agents [None]
  - Haemoglobin abnormal [None]
  - Aspartate aminotransferase abnormal [None]
  - Alanine aminotransferase abnormal [None]
  - Blood alkaline phosphatase abnormal [None]
